FAERS Safety Report 13335752 (Version 1)
Quarter: 2017Q1

REPORT INFORMATION
  Report Type: Spontaneous
  Country: US (occurrence: US)
  Receive Date: 20170315
  Receipt Date: 20170315
  Transmission Date: 20170428
  Serious: No
  Sender: FDA-Public Use
  Company Number: US-TEVA-633672USA

PATIENT
  Age: 77 Year
  Sex: Female

DRUGS (1)
  1. CETIRIZINE W/PSEUDOEPHEDRINE [Suspect]
     Active Substance: CETIRIZINE HYDROCHLORIDE\PSEUDOEPHEDRINE HYDROCHLORIDE
     Indication: PRODUCT USED FOR UNKNOWN INDICATION
     Dosage: 5MG/120MG
     Route: 048
     Dates: start: 201602

REACTIONS (2)
  - Drug administered to patient of inappropriate age [Unknown]
  - Somnolence [Unknown]

NARRATIVE: CASE EVENT DATE: 201602
